FAERS Safety Report 13132110 (Version 1)
Quarter: 2017Q1

REPORT INFORMATION
  Report Type: Report from Study
  Country: US (occurrence: US)
  Receive Date: 20170119
  Receipt Date: 20170119
  Transmission Date: 20170428
  Serious: No
  Sender: FDA-Public Use
  Company Number: US-AMGEN-USASL2017007172

PATIENT
  Age: 46 Year
  Sex: Female

DRUGS (1)
  1. ENBREL [Suspect]
     Active Substance: ETANERCEPT
     Indication: ANKYLOSING SPONDYLITIS
     Dosage: 50 MG, QWK
     Route: 065

REACTIONS (10)
  - Hot flush [Unknown]
  - Injection site swelling [Unknown]
  - Injection site bruising [Unknown]
  - Musculoskeletal stiffness [Unknown]
  - Headache [Unknown]
  - Nodule [Unknown]
  - Sensory loss [Unknown]
  - Fatigue [Unknown]
  - Nausea [Unknown]
  - Insomnia [Unknown]
